FAERS Safety Report 12862105 (Version 1)
Quarter: 2016Q4

REPORT INFORMATION
  Report Type: Spontaneous
  Country: US (occurrence: US)
  Receive Date: 20161018
  Receipt Date: 20161018
  Transmission Date: 20170207
  Serious: Yes (Disabling, Other)
  Sender: FDA-Public Use
  Company Number: None

PATIENT
  Age: 29 Year
  Sex: Female
  Weight: 69.3 kg

DRUGS (1)
  1. WAL ITIN [Suspect]
     Active Substance: LORATADINE
     Indication: HYPERSENSITIVITY
     Dosage: ?          QUANTITY:1 TABLET(S);?
     Route: 048
     Dates: start: 20161017, end: 20161018

REACTIONS (12)
  - Sinus pain [None]
  - Headache [None]
  - Fatigue [None]
  - Pain [None]
  - Swollen tongue [None]
  - Dizziness [None]
  - Feeling abnormal [None]
  - Paranasal sinus discomfort [None]
  - Pruritus [None]
  - Syncope [None]
  - Seborrhoea [None]
  - Rhinorrhoea [None]

NARRATIVE: CASE EVENT DATE: 20161018
